FAERS Safety Report 8766875 (Version 2)
Quarter: 2012Q4

REPORT INFORMATION
  Report Type: 
  Country: US (occurrence: US)
  Receive Date: 20120904
  Receipt Date: 20120917
  Transmission Date: 20130627
  Serious: Yes (Death, Life-Threatening, Hospitalization, Other)
  Sender: FDA-Public Use
  Company Number: US-GENZYME-CLOF-1002283

PATIENT
  Age: 83 None
  Sex: Male
  Weight: 70.11 kg

DRUGS (13)
  1. CLOLAR [Suspect]
     Indication: MANTLE CELL LYMPHOMA RECURRENT
     Dosage: 3 mg, once daily days 1-21of 28 day cycle
     Route: 048
     Dates: start: 20120620
  2. CLOLAR [Suspect]
     Dosage: 2 mg, once daily days 1-21of 28 day cycle
     Route: 048
     Dates: start: 20120725, end: 20120814
  3. ALLOPURINOL [Concomitant]
     Indication: PRODUCT USED FOR UNKNOWN INDICATION
     Dosage: UNK
     Route: 065
  4. XANAX [Concomitant]
     Indication: PRODUCT USED FOR UNKNOWN INDICATION
     Dosage: UNK
     Route: 065
  5. ASPIRIN [Concomitant]
     Indication: PRODUCT USED FOR UNKNOWN INDICATION
     Dosage: UNK
     Route: 065
  6. BACTRIM [Concomitant]
     Indication: PRODUCT USED FOR UNKNOWN INDICATION
     Dosage: UNK
     Route: 065
  7. LOPRESSOR [Concomitant]
     Indication: PRODUCT USED FOR UNKNOWN INDICATION
     Dosage: UNK
     Route: 065
  8. OXYCONTIN [Concomitant]
     Indication: PRODUCT USED FOR UNKNOWN INDICATION
     Dosage: UNK
     Route: 065
  9. OXYCODONE [Concomitant]
     Indication: PRODUCT USED FOR UNKNOWN INDICATION
     Dosage: UNK
     Route: 065
  10. COLACE [Concomitant]
     Indication: PRODUCT USED FOR UNKNOWN INDICATION
     Dosage: UNK
     Route: 065
  11. SENOKOT [Concomitant]
     Indication: PRODUCT USED FOR UNKNOWN INDICATION
     Dosage: UNK
     Route: 065
  12. DULCOLAX [Concomitant]
     Indication: PRODUCT USED FOR UNKNOWN INDICATION
     Dosage: UNK
     Route: 065
  13. LACTULOSE [Concomitant]
     Indication: PRODUCT USED FOR UNKNOWN INDICATION
     Dosage: UNK
     Route: 065

REACTIONS (16)
  - Atelectasis [Unknown]
  - Cholelithiasis [Unknown]
  - Pericardial effusion [Fatal]
  - Metabolic disorder [Fatal]
  - Unresponsive to stimuli [Fatal]
  - Pulse absent [Fatal]
  - Arrhythmia [Fatal]
  - Mantle cell lymphoma [Fatal]
  - Chest pain [Fatal]
  - Blood electrolytes abnormal [Fatal]
  - Mental impairment [Fatal]
  - Flank pain [Fatal]
  - Pericarditis [Fatal]
  - Constipation [Fatal]
  - Bone marrow failure [Fatal]
  - Dyspnoea [Fatal]
